FAERS Safety Report 11904963 (Version 1)
Quarter: 2016Q1

REPORT INFORMATION
  Report Type: Spontaneous
  Country: US (occurrence: US)
  Receive Date: 20160108
  Receipt Date: 20160108
  Transmission Date: 20160526
  Serious: No
  Sender: FDA-Public Use
  Company Number: US-ALLERGAN-1520811US

PATIENT
  Age: 55 Year
  Sex: Male

DRUGS (1)
  1. DALVANCE [Suspect]
     Active Substance: DALBAVANCIN
     Indication: OSTEOMYELITIS
     Dosage: 1000 MG, SINGLE
     Route: 042
     Dates: start: 20151005

REACTIONS (4)
  - Wrong technique in product usage process [Unknown]
  - Musculoskeletal pain [Not Recovered/Not Resolved]
  - Off label use [Unknown]
  - Extravasation [Recovering/Resolving]

NARRATIVE: CASE EVENT DATE: 20151005
